FAERS Safety Report 4777017-0 (Version None)
Quarter: 2005Q3

REPORT INFORMATION
  Report Type: 
  Country: None (occurrence: None)
  Receive Date: 20050923
  Receipt Date: 20050902
  Transmission Date: 20060218
  Serious: Yes (Hospitalization)
  Sender: FDA-Public Use
  Company Number: 2005017538

PATIENT
  Age: 46 Year
  Sex: Female
  Weight: 80 kg

DRUGS (1)
  1. QUILONUM RETARD [Suspect]
     Dosage: 450MG SINGLE DOSE
     Route: 048
     Dates: start: 20050902, end: 20050902

REACTIONS (6)
  - AGITATION [None]
  - INTENTIONAL MISUSE [None]
  - NAUSEA [None]
  - NYSTAGMUS [None]
  - SUICIDE ATTEMPT [None]
  - TREMOR [None]
